FAERS Safety Report 10768984 (Version 2)
Quarter: 2015Q4

REPORT INFORMATION
  Report Type: Spontaneous
  Country: FR (occurrence: FR)
  Receive Date: 20150206
  Receipt Date: 20151020
  Transmission Date: 20160304
  Serious: Yes (Death, Congenital Anomaly, Other)
  Sender: FDA-Public Use
  Company Number: FR-ELI_LILLY_AND_COMPANY-FR201501009476

PATIENT
  Age: 3 Year

DRUGS (2)
  1. PROZAC [Suspect]
     Active Substance: FLUOXETINE HYDROCHLORIDE
     Indication: DEPRESSION
     Dosage: 20 MG, QD
     Route: 064
     Dates: start: 20110608
  2. ZYPREXA [Suspect]
     Active Substance: OLANZAPINE
     Indication: PRODUCT USED FOR UNKNOWN INDICATION
     Dosage: UNK, UNKNOWN
     Route: 064
     Dates: start: 20110608, end: 20111222

REACTIONS (4)
  - Small for dates baby [Unknown]
  - Foetal exposure during pregnancy [Unknown]
  - Brain neoplasm [Fatal]
  - Pleural effusion [Unknown]

NARRATIVE: CASE EVENT DATE: 201501
